FAERS Safety Report 10507044 (Version 3)
Quarter: 2014Q4

REPORT INFORMATION
  Report Type: Report from Study
  Country: HU (occurrence: HU)
  Receive Date: 20141009
  Receipt Date: 20141021
  Transmission Date: 20150528
  Serious: Yes (Hospitalization)
  Sender: FDA-Public Use
  Company Number: HU-NOVOPROD-422829

PATIENT
  Sex: Male

DRUGS (9)
  1. NOVORAPID [Suspect]
     Active Substance: INSULIN ASPART
     Indication: TYPE 2 DIABETES MELLITUS
     Dosage: 17 U, QD (6 U MORNING+6 U NOON+ 5 U NIGHT)
     Route: 058
     Dates: start: 20140430, end: 20140726
  2. BISOBLOCK [Concomitant]
     Dosage: 5 MG, QD
     Route: 048
  3. DOXIUM [Concomitant]
     Route: 048
  4. NOACID                             /00057401/ [Concomitant]
     Dosage: 40 MG, BID
     Route: 048
  5. ADIMET [Concomitant]
     Dosage: 500 MG, BID
     Route: 048
  6. TORVACARD [Concomitant]
     Active Substance: ATORVASTATIN CALCIUM
     Dosage: 40 MG, QD
     Route: 048
  7. FRONTIN [Concomitant]
     Active Substance: ALPRAZOLAM
     Dosage: 0.25 MG, BID
     Route: 048
  8. INSULIN DETEMIR 2.4 MMOL/L [Suspect]
     Active Substance: INSULIN DETEMIR
     Indication: TYPE 2 DIABETES MELLITUS
     Dosage: 34 U, QD (AT 9 PM)
     Route: 058
     Dates: start: 20140430, end: 20140726
  9. PERINEVA [Concomitant]
     Dosage: 4 MG, QD
     Route: 048

REACTIONS (3)
  - Pneumonia [Recovered/Resolved]
  - Hypoglycaemia [Recovered/Resolved]
  - Head injury [Unknown]
